FAERS Safety Report 10371769 (Version 1)
Quarter: 2014Q1

REPORT INFORMATION
  Report Type: Spontaneous
  Country: US (occurrence: None)
  Receive Date: 20140306
  Receipt Date: 20140306
  Transmission Date: 20141002
  Serious: Yes (Other)
  Sender: FDA-Public Use
  Company Number: 163-21880-13083857

PATIENT
  Age: 85 Year
  Sex: Female
  Weight: 64.86 kg

DRUGS (12)
  1. REVLIMID (LENALIDOMIDE) (10 MILLIGRAM, CAPSULES) [Suspect]
     Indication: 5Q MINUS SYNDROME
     Route: 048
     Dates: start: 20110927, end: 2011
  2. OMEPRAZOLE (OMEPRAZOLE) (UNKNOWN) [Concomitant]
  3. LIPITOR (ATORVASTATIN) (UNKNOWN) [Concomitant]
  4. FERROUS SULFATE (FERROUS SULFATE) (UNKNOWN) [Concomitant]
  5. FLAX SEED OIL (LINUM USITATISSIMUM SEED OIL) (UNKNOWN) [Concomitant]
  6. VITAMIN B6 (PYRIDOXINE HYDROCHLORIDE) (UNKNOWN) [Concomitant]
  7. VITAMIN C (ASCORBIC ACID) (UNKNOWN) [Concomitant]
  8. VITAMIN E (TOCOPHEROL) (UNKNOWN) [Concomitant]
  9. VITAMIN B12 (CYANOCOBALAMIN) (UNKNOWN) [Concomitant]
  10. CALCIUM WITH VITAMIN D (CALCIUM WITH VITAMIN D) (UNKNOWN) [Concomitant]
  11. CENTRUM SILVER (CENTRUM SILVER) (UNKNOWN) [Concomitant]
  12. GARLIC (GARLIC) (UNKNOWN) [Concomitant]

REACTIONS (1)
  - Phlebitis superficial [None]
